FAERS Safety Report 9096870 (Version 1)
Quarter: 2013Q1

REPORT INFORMATION
  Report Type: Spontaneous
  Country: US (occurrence: US)
  Receive Date: 20130211
  Receipt Date: 20130211
  Transmission Date: 20140127
  Serious: Yes (Death)
  Sender: FDA-Public Use
  Company Number: PHEH2013US003356

PATIENT
  Sex: Female

DRUGS (7)
  1. AFINITOR [Suspect]
     Dosage: 10 MG, QD
     Route: 048
  2. EXEMESTANE [Concomitant]
     Dosage: 25 MG, UNK
  3. DIOVAN [Concomitant]
     Dosage: 160 MG, UNK
  4. METOCLOPRAM [Concomitant]
     Dosage: 10 MG, UNK
  5. SIMVASTATIN [Concomitant]
     Dosage: 10 MG, UNK
  6. ASPIRIN [Concomitant]
     Dosage: 81 MG, UNK
  7. POLYETHYLENE GLYCOL 3350 [Concomitant]

REACTIONS (1)
  - Death [Fatal]
